FAERS Safety Report 5638731-8 (Version None)
Quarter: 2008Q1

REPORT INFORMATION
  Report Type: 
  Country: None (occurrence: None)
  Receive Date: 20080131
  Receipt Date: 20071127
  Transmission Date: 20080703
  Serious: No
  Sender: FDA-Public Use
  Company Number: 163-21880-07111500

PATIENT
  Age: 68 Year
  Sex: Female
  Weight: 72.5755 kg

DRUGS (6)
  1. REVLIMID [Suspect]
     Indication: MULTIPLE MYELOMA
     Dosage: 25 MG, 1 IN 1 D, ORAL
     Route: 048
     Dates: start: 20071017
  2. DEXAMETHASONE TAB [Concomitant]
  3. WARFARIN SODIUM [Concomitant]
  4. NIFEDIAC (NEFEDIPINE) [Concomitant]
  5. ZETIA [Concomitant]
  6. AROMASIN (EXEMESTANE) (TABLETS) [Concomitant]

REACTIONS (1)
  - URINARY TRACT INFECTION [None]
